FAERS Safety Report 4414143-X (Version None)
Quarter: 2004Q3

REPORT INFORMATION
  Report Type: 
  Country: None (occurrence: None)
  Receive Date: 20040729
  Receipt Date: 20040405
  Transmission Date: 20050211
  Serious: Yes (Hospitalization)
  Sender: FDA-Public Use
  Company Number: M2004.0916

PATIENT
  Age: 84 Year
  Sex: Female

DRUGS (4)
  1. FUROSEMIDE [Suspect]
     Indication: CARDIAC FAILURE CONGESTIVE
     Dosage: 8MG OD
  2. CELECOCIB, UNKNOWN MANUFACTURER [Suspect]
     Indication: ARTHRITIS
     Dosage: 200MG OD
  3. RAMIPRIL [Suspect]
     Indication: CARDIAC FAILURE CONGESTIVE
     Dosage: 10MG OD PO
     Route: 048
  4. CITALOPRAM [Concomitant]

REACTIONS (1)
  - LEFT VENTRICULAR FAILURE [None]
